FAERS Safety Report 4706037-7 (Version None)
Quarter: 2005Q2

REPORT INFORMATION
  Report Type: 
  Country: None (occurrence: None)
  Receive Date: 20050627
  Receipt Date: 20040726
  Transmission Date: 20051028
  Serious: Yes (Other)
  Sender: FDA-Public Use
  Company Number: US-JNJFOC-20040501471

PATIENT
  Age: 47 Year
  Sex: Male

DRUGS (1)
  1. FENTANYL [Suspect]
     Dosage: 100 UG/HR, 1 IN 48 HOUR, TRANSDERMAL
     Route: 062
     Dates: start: 20030416

REACTIONS (1)
  - DRUG ABUSER [None]
